FAERS Safety Report 10080038 (Version 1)
Quarter: 2014Q2

REPORT INFORMATION
  Report Type: Spontaneous
  Country: US (occurrence: US)
  Receive Date: 20140415
  Receipt Date: 20140415
  Transmission Date: 20141212
  Serious: Yes (Other)
  Sender: FDA-Public Use
  Company Number: US-TARO-2014P1003067

PATIENT
  Age: 68 Year
  Sex: Male

DRUGS (4)
  1. TERBINAFINE HYDROCHLORIDE CREAM 1% (LAMISIL) [Suspect]
     Indication: TINEA CRURIS
     Route: 061
     Dates: start: 201312
  2. TERBINAFINE HYDROCHLORIDE CREAM 1% (LAMISIL) [Suspect]
     Indication: TINEA CRURIS
     Route: 061
     Dates: start: 2014, end: 201402
  3. VITAMIN E LOTION [Concomitant]
  4. JOHNSON AND JOHNSON^S BABY OIL [Concomitant]

REACTIONS (5)
  - Drug effect incomplete [Unknown]
  - Application site erosion [Unknown]
  - Application site pain [Recovering/Resolving]
  - Cervical spinal stenosis [Unknown]
  - Application site irritation [Recovering/Resolving]
